FAERS Safety Report 6862034-7 (Version None)
Quarter: 2010Q3

REPORT INFORMATION
  Report Type: 
  Country: None (occurrence: None)
  Receive Date: 20100707
  Receipt Date: 20100622
  Transmission Date: 20110219
  Serious: Yes (Hospitalization, Other)
  Sender: FDA-Public Use
  Company Number: AEUSA201000125

PATIENT
  Age: 71 Year
  Sex: Male
  Weight: 112.4921 kg

DRUGS (11)
  1. GAMUNEX [Suspect]
     Indication: CHRONIC INFLAMMATORY DEMYELINATING POLYRADICULONEUROPATHY
     Dosage: 25 GM;TOTAL; IV
     Route: 042
     Dates: start: 20100317, end: 20100429
  2. GAMUNEX [Suspect]
  3. CARIMUNE [Suspect]
     Indication: CHRONIC INFLAMMATORY DEMYELINATING POLYRADICULONEUROPATHY
     Dosage: 0.4 GM/KG;QD
     Dates: end: 20100101
  4. VIGAMOX [Concomitant]
  5. PREDNISOLONE ACETATE [Concomitant]
  6. CELL CEPT [Concomitant]
  7. LYRICA [Concomitant]
  8. M.V.I. [Concomitant]
  9. ULTRAM [Concomitant]
  10. PREDNISONE [Concomitant]
  11. FESOTERODINE [Concomitant]

REACTIONS (13)
  - ASTHENIA [None]
  - BLOOD GLUCOSE INCREASED [None]
  - BLOOD UREA INCREASED [None]
  - BUNDLE BRANCH BLOCK LEFT [None]
  - FALL [None]
  - FATIGUE [None]
  - HYPERHIDROSIS [None]
  - HYPERTENSION [None]
  - HYPOAESTHESIA ORAL [None]
  - PALPITATIONS [None]
  - SYNCOPE [None]
  - TREMOR [None]
  - WHITE BLOOD CELL COUNT INCREASED [None]
